FAERS Safety Report 8803201 (Version 2)
Quarter: 2012Q4

REPORT INFORMATION
  Report Type: 
  Country: US (occurrence: US)
  Receive Date: 20120924
  Receipt Date: 20121017
  Transmission Date: 20130627
  Serious: Yes (Hospitalization)
  Sender: FDA-Public Use
  Company Number: US-BAYER-2012-097590

PATIENT
  Age: 31 Year
  Sex: Female
  Weight: 112.93 kg

DRUGS (15)
  1. YASMIN [Suspect]
     Indication: CONTRACEPTION
     Dosage: UNK
     Dates: start: 20100727, end: 20101014
  2. TEA, GREEN [Concomitant]
  3. VITAMIN C [ASCORBIC ACID] [Concomitant]
  4. BEE POLLEN [Concomitant]
  5. GOLDEN SEAL [Concomitant]
  6. FISH OIL [Concomitant]
  7. FOLIC ACID [Concomitant]
  8. VITAMIN B COMPLEX [Concomitant]
  9. CRANBERRY [Concomitant]
  10. VITAMIN K [Concomitant]
  11. ALFALFA [Concomitant]
  12. S-ADENOSYL-L-METHIONINE [Concomitant]
  13. MOTRIN [Concomitant]
     Indication: DYSURIA
     Dosage: UNK
     Dates: start: 20100727
  14. MACROBID [Concomitant]
     Indication: DYSURIA
     Dosage: 100 mg, 1 BID
     Dates: start: 20100727
  15. PERCOCET [Concomitant]
     Dosage: 5/325 mg tablet 1 every six hours if needed.

REACTIONS (10)
  - Pulmonary embolism [None]
  - Pulmonary infarction [None]
  - Dyspnoea [None]
  - Tachycardia [None]
  - Back pain [None]
  - Abdominal pain [None]
  - Fear of disease [None]
  - Injury [None]
  - Pain [None]
  - Pain [None]
